FAERS Safety Report 5909466-9 (Version None)
Quarter: 2008Q4

REPORT INFORMATION
  Report Type: 
  Country: None (occurrence: None)
  Receive Date: 20081006
  Receipt Date: 20080924
  Transmission Date: 20090506
  Serious: Yes (Life-Threatening)
  Sender: FDA-Public Use
  Company Number: GB-PFIZER INC-2008082420

PATIENT
  Age: 36 Year
  Sex: Female

DRUGS (2)
  1. CYTOTEC [Suspect]
     Route: 048
     Dates: start: 20080330, end: 20080330
  2. CO-DYDRAMOL [Concomitant]
     Route: 048
     Dates: start: 20080330

REACTIONS (7)
  - DYSPNOEA [None]
  - OXYGEN SATURATION DECREASED [None]
  - PRURITUS GENERALISED [None]
  - PYREXIA [None]
  - RASH ERYTHEMATOUS [None]
  - TACHYCARDIA [None]
  - TREMOR [None]
